FAERS Safety Report 17583514 (Version 1)
Quarter: 2020Q1

REPORT INFORMATION
  Report Type: Spontaneous
  Country: US (occurrence: US)
  Receive Date: 20200326
  Receipt Date: 20200326
  Transmission Date: 20200409
  Serious: Yes (Other)
  Sender: FDA-Public Use
  Company Number: US-TEVA-2020-US-1208694

PATIENT
  Age: 60 Year
  Sex: Female

DRUGS (4)
  1. AUSTEDO [Suspect]
     Active Substance: DEUTETRABENAZINE
     Dosage: 18 MILLIGRAM DAILY;
     Route: 048
  2. EYE STREAM [Concomitant]
     Active Substance: WATER
  3. AUSTEDO [Suspect]
     Active Substance: DEUTETRABENAZINE
     Indication: HUNTINGTON^S DISEASE
     Route: 048
     Dates: start: 201906
  4. AUSTEDO [Suspect]
     Active Substance: DEUTETRABENAZINE
     Dosage: 12 MILLIGRAM DAILY;
     Route: 048

REACTIONS (10)
  - Hyperventilation [Unknown]
  - Intentional product use issue [Unknown]
  - Lung neoplasm malignant [Unknown]
  - Hair disorder [Unknown]
  - Stress [Unknown]
  - Thyroidectomy [Unknown]
  - Cough [Unknown]
  - Dry eye [Recovering/Resolving]
  - Dyspnoea [Unknown]
  - Insomnia [Recovering/Resolving]

NARRATIVE: CASE EVENT DATE: 201912
